FAERS Safety Report 25674707 (Version 1)
Quarter: 2025Q3

REPORT INFORMATION
  Report Type: Spontaneous
  Country: MY (occurrence: MY)
  Receive Date: 20250813
  Receipt Date: 20250813
  Transmission Date: 20251021
  Serious: Yes (Other)
  Sender: RANBAXY
  Company Number: MY-SUN PHARMACEUTICAL INDUSTRIES LTD-2025R1-518474

PATIENT
  Sex: Female

DRUGS (4)
  1. SULFAMETHOXAZOLE\TRIMETHOPRIM [Suspect]
     Active Substance: SULFAMETHOXAZOLE\TRIMETHOPRIM
     Indication: Osteomyelitis
     Dosage: 10 MILLIGRAM/KILOGRAM, DAILY
     Route: 048
  2. SULFAMETHOXAZOLE\TRIMETHOPRIM [Suspect]
     Active Substance: SULFAMETHOXAZOLE\TRIMETHOPRIM
     Indication: Burkholderia pseudomallei infection
  3. CEFTAZIDIME [Concomitant]
     Active Substance: CEFTAZIDIME
     Indication: Burkholderia pseudomallei infection
     Route: 042
  4. CEFTAZIDIME [Concomitant]
     Active Substance: CEFTAZIDIME
     Indication: Osteomyelitis

REACTIONS (4)
  - Neutropenia [Recovered/Resolved]
  - Cytopenia [Recovered/Resolved]
  - Rash maculo-papular [Recovered/Resolved]
  - Hypersensitivity [Recovered/Resolved]
